FAERS Safety Report 9345820 (Version 1)
Quarter: 2013Q2

REPORT INFORMATION
  Report Type: Spontaneous
  Country: US (occurrence: US)
  Receive Date: 20130613
  Receipt Date: 20130613
  Transmission Date: 20140414
  Serious: No
  Sender: FDA-Public Use
  Company Number: US-US-EMD SERONO, INC.-7126200

PATIENT
  Age: 50 Year
  Sex: Female

DRUGS (4)
  1. REBIF [Suspect]
     Indication: PRODUCT USED FOR UNKNOWN INDICATION
     Route: 058
     Dates: start: 20030120
  2. VITAMIN D [Concomitant]
     Indication: PITUITARY TUMOUR
  3. VITAMINS [Concomitant]
     Indication: PITUITARY TUMOUR
  4. TYLENOL [Concomitant]
     Indication: PREMEDICATION

REACTIONS (4)
  - Blood urine present [Recovered/Resolved]
  - Hypertonic bladder [Unknown]
  - Nasopharyngitis [Unknown]
  - Meniscus injury [Not Recovered/Not Resolved]
